FAERS Safety Report 21070207 (Version 1)
Quarter: 2022Q3

REPORT INFORMATION
  Report Type: Report from Study
  Country: IT (occurrence: IT)
  Receive Date: 20220712
  Receipt Date: 20220712
  Transmission Date: 20221027
  Serious: Yes (Hospitalization)
  Sender: FDA-Public Use
  Company Number: IT-MYLANLABS-2022M1048766

PATIENT

DRUGS (4)
  1. PALIPERIDONE [Interacting]
     Active Substance: PALIPERIDONE
     Indication: Bipolar II disorder
     Dosage: 3 MILLIGRAM
     Route: 048
  2. ARIPIPRAZOLE [Interacting]
     Active Substance: ARIPIPRAZOLE
     Indication: Bipolar II disorder
     Dosage: 30 MILLIGRAM (DEFINED DAILY DOSE: 15MG)
     Route: 065
  3. CLOMIPRAMINE [Interacting]
     Active Substance: CLOMIPRAMINE
     Indication: Bipolar II disorder
     Dosage: 150 MILLIGRAM
     Route: 065
  4. LORAZEPAM [Concomitant]
     Active Substance: LORAZEPAM
     Indication: Product used for unknown indication
     Dosage: 1 MILLIGRAM
     Route: 065

REACTIONS (3)
  - Drug interaction [Unknown]
  - Somnolence [Unknown]
  - Sedation [Unknown]
